FAERS Safety Report 4879306-8 (Version None)
Quarter: 2006Q1

REPORT INFORMATION
  Report Type: 
  Country: None (occurrence: None)
  Receive Date: 20060112
  Receipt Date: 20050105
  Transmission Date: 20060701
  Serious: Yes (Hospitalization)
  Sender: FDA-Public Use
  Company Number: US-MERCK-0501USA00568

PATIENT
  Age: 70 Year
  Sex: Female
  Weight: 92 kg

DRUGS (8)
  1. VIOXX [Suspect]
     Indication: ARTHRITIS
     Route: 048
     Dates: start: 20010709, end: 20040901
  2. ARDINEX [Concomitant]
     Route: 065
  3. PAXIL [Concomitant]
     Route: 065
  4. PREVACID [Concomitant]
     Route: 065
  5. ATENOLOL [Concomitant]
     Route: 065
  6. AVALIDE [Concomitant]
     Route: 065
  7. LORAZEPAM [Concomitant]
     Route: 065
  8. LEVOXYL [Concomitant]
     Route: 065

REACTIONS (17)
  - ALLERGY TO ANIMAL [None]
  - ARTERIOSCLEROSIS [None]
  - ARTHROPATHY [None]
  - CATARACT [None]
  - CHEST PAIN [None]
  - COLON ADENOMA [None]
  - COUGH [None]
  - DIZZINESS [None]
  - EMOTIONAL DISORDER [None]
  - EYE DISORDER [None]
  - HAEMATOCHEZIA [None]
  - HYPERTENSION [None]
  - METABOLIC DISORDER [None]
  - ORAL INFECTION [None]
  - SLEEP APNOEA SYNDROME [None]
  - TRANSIENT ISCHAEMIC ATTACK [None]
  - URINARY TRACT INFECTION [None]
